FAERS Safety Report 4387366-6 (Version None)
Quarter: 2004Q2

REPORT INFORMATION
  Report Type: 
  Country: None (occurrence: None)
  Receive Date: 20040630
  Receipt Date: 20040415
  Transmission Date: 20050107
  Serious: No
  Sender: FDA-Public Use
  Company Number: US-GLAXOSMITHKLINE-A0507286A

PATIENT
  Sex: Male

DRUGS (3)
  1. ADVAIR HFA [Suspect]
     Indication: CHEST DISCOMFORT
     Dosage: 2PUFF TWICE PER DAY
     Route: 055
     Dates: start: 20040412
  2. ZOLOFT [Concomitant]
  3. KLONOPIN [Concomitant]

REACTIONS (2)
  - OEDEMA [None]
  - OVERDOSE [None]
